FAERS Safety Report 25518999 (Version 1)
Quarter: 2025Q3

REPORT INFORMATION
  Report Type: Spontaneous
  Country: EU (occurrence: EU)
  Receive Date: 20250704
  Receipt Date: 20250704
  Transmission Date: 20251020
  Serious: Yes (Other)
  Sender: ASTELLAS
  Company Number: EU-ASTELLAS-2025-AER-034904

PATIENT
  Age: 63 Year
  Sex: Female

DRUGS (6)
  1. GILTERITINIB [Suspect]
     Active Substance: GILTERITINIB
     Indication: Acute myeloid leukaemia refractory
     Route: 065
  2. GILTERITINIB [Suspect]
     Active Substance: GILTERITINIB
     Indication: Acute myeloid leukaemia recurrent
     Route: 065
  3. GILTERITINIB [Suspect]
     Active Substance: GILTERITINIB
     Indication: FLT3 gene mutation
  4. AZACITIDINE;VENETOCLAX [Concomitant]
     Indication: Acute myeloid leukaemia refractory
     Route: 065
  5. AZACITIDINE;VENETOCLAX [Concomitant]
     Indication: Acute myeloid leukaemia recurrent
  6. AZACITIDINE;VENETOCLAX [Concomitant]
     Indication: FLT3 gene mutation

REACTIONS (3)
  - Acute myeloid leukaemia recurrent [Unknown]
  - Product use issue [Unknown]
  - Off label use [Unknown]
